FAERS Safety Report 7747500-4 (Version None)
Quarter: 2011Q3

REPORT INFORMATION
  Report Type: 
  Country: None (occurrence: None)
  Receive Date: 20110909
  Receipt Date: 20110831
  Transmission Date: 20111222
  Serious: Yes (Other)
  Sender: FDA-Public Use
  Company Number: 1000022484

PATIENT
  Age: 33 Year
  Sex: Female
  Weight: 80.28 kg

DRUGS (8)
  1. METHOCARBAMOL (METHOCARBAMOL) (METHACARBAMOL) [Concomitant]
  2. LEXAPRO [Suspect]
     Indication: ANXIETY
     Dosage: 10 MG (10 M, 1 IN 1 D), ORAL; 10 MG BID (10 MG, 2 IN 1 D), ORAL
     Route: 048
     Dates: start: 20090201
  3. LEXAPRO [Suspect]
     Indication: PREMENSTRUAL SYNDROME
     Dosage: 10 MG (10 M, 1 IN 1 D), ORAL; 10 MG BID (10 MG, 2 IN 1 D), ORAL
     Route: 048
     Dates: start: 20090201
  4. LEXAPRO [Suspect]
     Indication: DEPRESSION
     Dosage: 10 MG (10 M, 1 IN 1 D), ORAL; 10 MG BID (10 MG, 2 IN 1 D), ORAL
     Route: 048
     Dates: start: 20090201
  5. HYDROCODONE/ACETAMINOPHEN (HYDROCODONE, ACETAINOPHEN) (HYDROCODONE, AC [Concomitant]
  6. LORATADINE (LORATADINE) (LORATADINE) [Concomitant]
  7. ZANAFLEX (TIZANIDINE HYDROCHLORIDE) (TIZANIDINE HYDROCHLORIDE) [Concomitant]
  8. MOTRIN [Concomitant]

REACTIONS (1)
  - NO ADVERSE EVENT [None]
